FAERS Safety Report 7280379-6 (Version None)
Quarter: 2011Q1

REPORT INFORMATION
  Report Type: 
  Country: None (occurrence: None)
  Receive Date: 20110208
  Receipt Date: 20110127
  Transmission Date: 20110831
  Serious: Yes (Other)
  Sender: FDA-Public Use
  Company Number: US-ELI_LILLY_AND_COMPANY-US201101007297

PATIENT
  Sex: Female

DRUGS (8)
  1. HUMALOG MIX 75/25 [Suspect]
     Dosage: 12 U, EACH EVENING
     Dates: start: 20101001
  2. HUMALOG MIX 75/25 [Suspect]
     Dosage: 4 U, AS NEEDED
     Dates: start: 20101001
  3. HUMALOG MIX 75/25 [Suspect]
     Indication: TYPE 2 DIABETES MELLITUS
     Dosage: 22 U, EACH MORNING
     Dates: start: 20101001
  4. HUMALOG MIX 75/25 [Suspect]
     Dosage: 12 U, EACH EVENING
  5. GLIMEPIRIDE [Concomitant]
     Dosage: 4 MG, EACH EVENING
  6. GLIMEPIRIDE [Concomitant]
     Indication: DIABETES MELLITUS
     Dosage: 4 MG, 2/D
     Route: 048
  7. HUMALOG MIX 75/25 [Suspect]
     Dosage: 4 U, AS NEEDED
  8. HUMALOG MIX 75/25 [Suspect]
     Dosage: 22 U, EACH MORNING

REACTIONS (4)
  - VISUAL FIELD DEFECT [None]
  - HEADACHE [None]
  - EYE DISORDER [None]
  - FATIGUE [None]
